FAERS Safety Report 12700119 (Version 2)
Quarter: 2016Q3

REPORT INFORMATION
  Report Type: Report from Study
  Country: PL (occurrence: PL)
  Receive Date: 20160830
  Receipt Date: 20160906
  Transmission Date: 20161109
  Serious: Yes (Hospitalization)
  Sender: FDA-Public Use
  Company Number: PL-PFIZER INC-2015268911

PATIENT
  Age: 43 Year
  Sex: Female
  Weight: 61 kg

DRUGS (5)
  1. DEXAVEN [Concomitant]
     Active Substance: DEXAMETHASONE
     Indication: ANTIALLERGIC THERAPY
     Dosage: DOSE:2 X 8 MG, REGIMEN:EVERY 21 DAYS
     Route: 042
     Dates: start: 20150804, end: 20150804
  2. DOCETAXEL. [Suspect]
     Active Substance: DOCETAXEL
     Indication: BREAST CANCER
     Dosage: 122 MG, EVERY 21 DAYS
     Route: 042
     Dates: start: 20150804
  3. TRASTUZUMAB [Suspect]
     Active Substance: TRASTUZUMAB
     Indication: BREAST CANCER
     Dosage: 456 MG, EVERY 21 DAYS
     Route: 042
     Dates: start: 20150804
  4. CARBOPLATIN. [Suspect]
     Active Substance: CARBOPLATIN
     Indication: BREAST CANCER
     Dosage: 690 MG (AUC 6), EVERY 21 DAYS
     Route: 042
     Dates: start: 20150804
  5. ONDASETRON [Concomitant]
     Active Substance: ONDANSETRON
     Indication: PROPHYLAXIS OF NAUSEA AND VOMITING
     Dosage: DOSE:2 X 8 MG,REGIMEN:  EVERY 21 DAYS
     Route: 042
     Dates: start: 20150804, end: 20150804

REACTIONS (2)
  - Neutropenia [Recovered/Resolved]
  - Dehydration [Recovered/Resolved]

NARRATIVE: CASE EVENT DATE: 20150811
